FAERS Safety Report 15299320 (Version 1)
Quarter: 2018Q3

REPORT INFORMATION
  Report Type: Report from Study
  Country: GB (occurrence: GB)
  Receive Date: 20180821
  Receipt Date: 20180821
  Transmission Date: 20181010
  Serious: Yes (Hospitalization)
  Sender: FDA-Public Use
  Company Number: GB-TEVA-2018-GB-945696

PATIENT
  Sex: Female

DRUGS (4)
  1. DILTIAZEM. [Suspect]
     Active Substance: DILTIAZEM
     Route: 065
  2. NICORANDIL [Suspect]
     Active Substance: NICORANDIL
     Route: 065
  3. LOSARTAN. [Suspect]
     Active Substance: LOSARTAN
     Route: 065
  4. ISOSORBIDE MONONITRATE. [Suspect]
     Active Substance: ISOSORBIDE MONONITRATE
     Route: 065

REACTIONS (1)
  - Hypotension [Unknown]
